FAERS Safety Report 12906006 (Version 1)
Quarter: 2016Q4

REPORT INFORMATION
  Report Type: Spontaneous
  Country: US (occurrence: US)
  Receive Date: 20161101
  Receipt Date: 20161101
  Transmission Date: 20170207
  Serious: No
  Sender: FDA-Public Use
  Company Number: None

PATIENT
  Age: 80 Year
  Sex: Male

DRUGS (1)
  1. NEXAVAR [Suspect]
     Active Substance: SORAFENIB
     Indication: HEPATIC CANCER
     Dosage: 200MG BID (ON ALTERNATE ORAL
     Route: 048
     Dates: start: 20160204, end: 20161028

REACTIONS (2)
  - Nausea [None]
  - Asthenia [None]

NARRATIVE: CASE EVENT DATE: 20161028
